FAERS Safety Report 23442617 (Version 3)
Quarter: 2024Q2

REPORT INFORMATION
  Report Type: Spontaneous
  Country: US (occurrence: US)
  Receive Date: 20240125
  Receipt Date: 20240528
  Transmission Date: 20240715
  Serious: Yes (Other)
  Sender: FDA-Public Use
  Company Number: US-MLMSERVICE-20240116-4775858-1

PATIENT
  Sex: Female

DRUGS (2)
  1. TESTOSTERONE CYPIONATE [Suspect]
     Active Substance: TESTOSTERONE CYPIONATE
     Indication: Gender reassignment therapy
     Dosage: UNK
     Dates: start: 2015
  2. FINASTERIDE [Concomitant]
     Active Substance: FINASTERIDE
     Indication: Gender reassignment therapy
     Dosage: UNK
     Dates: start: 2015

REACTIONS (2)
  - Endometrial cancer [Unknown]
  - Off label use [Unknown]

NARRATIVE: CASE EVENT DATE: 20150101
